FAERS Safety Report 6152122-5 (Version None)
Quarter: 2009Q2

REPORT INFORMATION
  Report Type: 
  Country: None (occurrence: None)
  Receive Date: 20090410
  Receipt Date: 20090326
  Transmission Date: 20091009
  Serious: Yes (Hospitalization)
  Sender: FDA-Public Use
  Company Number: AU-PFIZER INC-2009187385

PATIENT

DRUGS (2)
  1. CHAMPIX [Suspect]
     Indication: NICOTINE DEPENDENCE
     Dosage: FREQUENCY: BD,
     Route: 048
     Dates: start: 20090101
  2. ANTIDEPRESSANTS [Suspect]

REACTIONS (2)
  - DERMATITIS EXFOLIATIVE [None]
  - RASH [None]
